FAERS Safety Report 4662016-X (Version None)
Quarter: 2005Q2

REPORT INFORMATION
  Report Type: 
  Country: None (occurrence: None)
  Receive Date: 20050512
  Receipt Date: 20050429
  Transmission Date: 20051028
  Serious: Yes (Other)
  Sender: FDA-Public Use
  Company Number: HQWYE611610MAY05

PATIENT
  Age: 35 Year
  Sex: Male
  Weight: 99.88 kg

DRUGS (1)
  1. ADVIL [Suspect]
     Indication: EAR INFECTION
     Dosage: 2 TABLET 1X PER 1 DAY, ORAL
     Route: 048
     Dates: start: 20050427

REACTIONS (2)
  - RASH [None]
  - SKIN EXFOLIATION [None]
